FAERS Safety Report 10983569 (Version 3)
Quarter: 2019Q4

REPORT INFORMATION
  Report Type: Spontaneous
  Country: US (occurrence: US)
  Receive Date: 20150403
  Receipt Date: 20191220
  Transmission Date: 20200122
  Serious: Yes (Other)
  Sender: FDA-Public Use
  Company Number: US-SA-2015SA040880

PATIENT
  Age: 86 Year
  Sex: Female

DRUGS (1)
  1. LANTUS SOLOSTAR [Suspect]
     Active Substance: INSULIN GLARGINE
     Indication: TYPE 2 DIABETES MELLITUS
     Dosage: 30 U, HS
     Route: 065
     Dates: start: 2001

REACTIONS (5)
  - Blood glucose decreased [Unknown]
  - Visual impairment [Unknown]
  - Macular degeneration [Unknown]
  - Hyperhidrosis [Unknown]
  - Wrong technique in device usage process [Unknown]
